FAERS Safety Report 6142212-5 (Version None)
Quarter: 2009Q2

REPORT INFORMATION
  Report Type: 
  Country: None (occurrence: None)
  Receive Date: 20090403
  Receipt Date: 20070913
  Transmission Date: 20091009
  Serious: Yes (Death, Hospitalization, Other)
  Sender: FDA-Public Use
  Company Number: US-ASTRAZENECA-2007UW09272

PATIENT
  Age: 12258 Day
  Sex: Male
  Weight: 92.5 kg

DRUGS (26)
  1. SEROQUEL [Suspect]
     Indication: SCHIZOPHRENIA
     Route: 048
     Dates: start: 20021201, end: 20061203
  2. SEROQUEL [Suspect]
     Indication: DEPRESSION
     Route: 048
     Dates: start: 20021201, end: 20061203
  3. SEROQUEL [Suspect]
     Dosage: 50-400 MG
     Route: 048
  4. SEROQUEL [Suspect]
     Dosage: 50-400 MG
     Route: 048
  5. ABILIFY [Concomitant]
  6. CLOZARIL [Concomitant]
  7. HALDOL [Concomitant]
  8. NAVANE [Concomitant]
  9. RISPERDAL [Concomitant]
  10. STELAZINE [Concomitant]
  11. ZYPREXA [Concomitant]
  12. TEGRETOL [Concomitant]
  13. VISTARIL [Concomitant]
  14. PROTONIX [Concomitant]
  15. KLONOPIN [Concomitant]
  16. SYNTHROID [Concomitant]
  17. COGENTIN [Concomitant]
  18. DIOVAN HCT [Concomitant]
  19. BYETTA [Concomitant]
  20. MICARDIS [Concomitant]
  21. TALACEN [Concomitant]
  22. STADOL [Concomitant]
  23. PREVACID [Concomitant]
  24. TRAZODONE [Concomitant]
  25. LORTAB [Concomitant]
  26. NUBAIN [Concomitant]

REACTIONS (16)
  - ABDOMINAL PAIN [None]
  - CHEST DISCOMFORT [None]
  - CHEST PAIN [None]
  - DIABETES MELLITUS [None]
  - DIABETIC COMA [None]
  - FACIAL PALSY [None]
  - HYPERTENSION [None]
  - HYPOTHYROIDISM [None]
  - INFECTION [None]
  - PEPTIC ULCER [None]
  - PERIUMBILICAL ABSCESS [None]
  - POLYSUBSTANCE DEPENDENCE [None]
  - PSYCHOTIC DISORDER [None]
  - SCHIZOAFFECTIVE DISORDER [None]
  - SCHIZOPHRENIA, PARANOID TYPE [None]
  - SINUSITIS [None]
